FAERS Safety Report 4364515-7 (Version None)
Quarter: 2004Q2

REPORT INFORMATION
  Report Type: 
  Country: None (occurrence: None)
  Receive Date: 20040519
  Receipt Date: 20040503
  Transmission Date: 20050107
  Serious: Yes (Other)
  Sender: FDA-Public Use
  Company Number: 2003-BP-02568RO

PATIENT
  Age: 57 Year
  Sex: Male

DRUGS (3)
  1. PREDNISONE TABLET USP, 5 MG (PREDNISONE) [Suspect]
     Indication: RENAL TRANSPLANT
     Dates: start: 20010712
  2. BMS224818 (BMS224818-INVESTIGATIONAL) [Suspect]
     Indication: RENAL TRANSPLANT
     Dosage: 5 MG/KG EVERY 8 WEEKS (1 IN 8 WK), IV
     Route: 042
     Dates: start: 20010710
  3. MYCOPHENOLATE MOFETIL [Suspect]
     Dosage: 2 G, (1 G, 2 IN 1 D)
     Dates: start: 20010711

REACTIONS (1)
  - CEREBRAL THROMBOSIS [None]
